FAERS Safety Report 6873508-7 (Version None)
Quarter: 2010Q3

REPORT INFORMATION
  Report Type: 
  Country: None (occurrence: None)
  Receive Date: 20100723
  Receipt Date: 20090211
  Transmission Date: 20110219
  Serious: No
  Sender: FDA-Public Use
  Company Number: US-PFIZER INC-2009171373

PATIENT
  Sex: Female
  Weight: 60.317 kg

DRUGS (2)
  1. CHANTIX [Suspect]
     Indication: SMOKING CESSATION THERAPY
     Dosage: UNK
  2. DRUG, UNSPECIFIED [Concomitant]
     Dosage: UNK

REACTIONS (9)
  - AGGRESSION [None]
  - CRYING [None]
  - HEART RATE INCREASED [None]
  - ILL-DEFINED DISORDER [None]
  - INSOMNIA [None]
  - MEMORY IMPAIRMENT [None]
  - NIGHTMARE [None]
  - TACHYPHRENIA [None]
  - THINKING ABNORMAL [None]
